FAERS Safety Report 11032943 (Version 1)
Quarter: 2015Q2

REPORT INFORMATION
  Report Type: Other
  Country: DE (occurrence: DE)
  Receive Date: 20150415
  Receipt Date: 20150415
  Transmission Date: 20150821
  Serious: Yes (Other)
  Sender: FDA-Public Use
  Company Number: DE-MYLANLABS-2015M1010880

PATIENT

DRUGS (1)
  1. CLINDAMYCIN [Suspect]
     Active Substance: CLINDAMYCIN\CLINDAMYCIN PHOSPHATE
     Indication: PERIODONTITIS
     Dosage: 1 DF, TID (DAILY DOSE: 3 DF DOSAGE FORM EVERY DAY)

REACTIONS (2)
  - Paralysis [Unknown]
  - Diplegia [Unknown]

NARRATIVE: CASE EVENT DATE: 20150112
